FAERS Safety Report 17006733 (Version 1)
Quarter: 2019Q4

REPORT INFORMATION
  Report Type: Spontaneous
  Country: FR (occurrence: FR)
  Receive Date: 20191107
  Receipt Date: 20191107
  Transmission Date: 20200122
  Serious: Yes (Other)
  Sender: FDA-Public Use
  Company Number: FR-SAMSUNG BIOEPIS-SB-2019-32245

PATIENT
  Age: 47 Year
  Sex: Female
  Weight: 84 kg

DRUGS (2)
  1. FLIXABI [Suspect]
     Active Substance: INFLIXIMAB
     Route: 042
     Dates: start: 20190102, end: 20190102
  2. FLIXABI [Suspect]
     Active Substance: INFLIXIMAB
     Indication: COLITIS
     Route: 042
     Dates: start: 20190227, end: 20190227

REACTIONS (4)
  - Erythema [Recovered/Resolved]
  - Product use in unapproved indication [Unknown]
  - Pruritus [Recovered/Resolved]
  - Urticaria [Recovered/Resolved]

NARRATIVE: CASE EVENT DATE: 20190102
